FAERS Safety Report 9571140 (Version 1)
Quarter: 2013Q1

REPORT INFORMATION
  Report Type: Spontaneous
  Country: US (occurrence: None)
  Receive Date: 20120525
  Receipt Date: 20120525
  Transmission Date: 20140127
  Serious: No
  Sender: FDA-Public Use
  Company Number: 348805

PATIENT
  Age: 63 Year
  Sex: Female

DRUGS (1)
  1. VICTOZA(LIRAGLUTIDE) SOLUTION FOR INJECTION, 6MG/ML [Suspect]
     Indication: TYPE 2 DIABETES MELLITUS
     Route: 058
     Dates: start: 20120305

REACTIONS (3)
  - Insomnia [None]
  - Abdominal distension [None]
  - Gastrooesophageal reflux disease [None]
